FAERS Safety Report 6246903-7 (Version None)
Quarter: 2009Q2

REPORT INFORMATION
  Report Type: 
  Country: None (occurrence: None)
  Receive Date: 20090626
  Receipt Date: 20090618
  Transmission Date: 20091009
  Serious: Yes (Hospitalization)
  Sender: FDA-Public Use
  Company Number: US-B.I. PHARMACEUTICALS,INC./RIDGEFIELD-2009-BP-07414BP

PATIENT
  Age: 50 Year
  Sex: Female
  Weight: 83.4 kg

DRUGS (12)
  1. CLONIDINE HCL [Suspect]
     Dosage: 0.4 MG
     Route: 048
     Dates: start: 20070809
  2. AXITINIB [Suspect]
  3. ATENOLOL [Suspect]
     Dosage: 50 MG
     Route: 048
     Dates: start: 20070808
  4. LISINOPRIL [Suspect]
     Dosage: 40 MG
     Route: 048
     Dates: start: 20070225
  5. BEVACIZUMAB [Suspect]
     Indication: COLON CANCER
     Route: 042
     Dates: start: 20070815
  6. OXALIPLATIN [Suspect]
     Indication: COLON CANCER
     Route: 042
     Dates: start: 20070815, end: 20080425
  7. FOLINIC ACID [Suspect]
     Indication: COLON CANCER
     Route: 042
     Dates: start: 20070815
  8. FLUOROURACIL [Suspect]
     Indication: COLON CANCER
     Route: 042
     Dates: start: 20070815
  9. FLUOROURACIL [Suspect]
     Dosage: 1600MG/M^2, ONE EVERY 14 DAYS,
     Route: 042
     Dates: start: 20070815
  10. HYDROCHLOROTHIAZIDE [Concomitant]
     Dosage: 25 MG
     Dates: start: 20071123
  11. VICODIN [Concomitant]
     Dates: start: 20070501
  12. CENTRUM [Concomitant]
     Dates: start: 20080401

REACTIONS (2)
  - HYPOTENSION [None]
  - PYREXIA [None]
